FAERS Safety Report 15489803 (Version 1)
Quarter: 2018Q4

REPORT INFORMATION
  Report Type: Spontaneous
  Country: US (occurrence: US)
  Receive Date: 20181011
  Receipt Date: 20181011
  Transmission Date: 20190205
  Serious: No
  Sender: FDA-Public Use
  Company Number: US-ALLERGAN-1812612US

PATIENT
  Sex: Female

DRUGS (5)
  1. COMBIGAN [Suspect]
     Active Substance: BRIMONIDINE TARTRATE\TIMOLOL MALEATE
     Dosage: 2 GTT, Q12H (QAM AND QPM)
     Route: 047
     Dates: start: 20180221
  2. COMBIGAN [Suspect]
     Active Substance: BRIMONIDINE TARTRATE\TIMOLOL MALEATE
     Dosage: 2 GTT, Q12H (QAM AND QPM)
     Route: 047
     Dates: start: 20180221
  3. COMBIGAN [Suspect]
     Active Substance: BRIMONIDINE TARTRATE\TIMOLOL MALEATE
     Indication: GLAUCOMA
     Dosage: UNK
     Route: 047
  4. COMBIGAN [Suspect]
     Active Substance: BRIMONIDINE TARTRATE\TIMOLOL MALEATE
     Dosage: 2 GTT, Q12H (QAM AND QPM)
     Route: 047
     Dates: start: 20180221
  5. TRAVATAN Z [Concomitant]
     Active Substance: TRAVOPROST
     Indication: GLAUCOMA
     Dosage: UNK
     Route: 047

REACTIONS (13)
  - Product dose omission [Unknown]
  - Dry mouth [Unknown]
  - Speech disorder [Unknown]
  - Product storage error [Unknown]
  - Thirst [Unknown]
  - Muscular weakness [Not Recovered/Not Resolved]
  - Incorrect dose administered [Unknown]
  - Accidental exposure to product [Unknown]
  - Product dropper issue [Unknown]
  - Wrist fracture [Not Recovered/Not Resolved]
  - Dysgeusia [Unknown]
  - Product container issue [Unknown]
  - Product packaging quantity issue [Unknown]
